FAERS Safety Report 5706501-8 (Version None)
Quarter: 2008Q2

REPORT INFORMATION
  Report Type: 
  Country: None (occurrence: None)
  Receive Date: 20080414
  Receipt Date: 20080403
  Transmission Date: 20081010
  Serious: Yes (Hospitalization, Other)
  Sender: FDA-Public Use
  Company Number: 2008AP000793

PATIENT
  Age: 58 Year
  Sex: Female

DRUGS (2)
  1. LITHIUM CARBONATE CAP [Suspect]
     Indication: SCHIZOAFFECTIVE DISORDER
     Dosage: 300 MG;TID
     Dates: start: 19980101
  2. RISPERIDONE [Concomitant]

REACTIONS (19)
  - CEREBRAL ISCHAEMIA [None]
  - COGNITIVE DISORDER [None]
  - CONDITION AGGRAVATED [None]
  - CONFUSIONAL STATE [None]
  - DELIRIUM [None]
  - DELUSION [None]
  - DELUSION OF GRANDEUR [None]
  - DISORIENTATION [None]
  - FLIGHT OF IDEAS [None]
  - HALLUCINATION, AUDITORY [None]
  - HYPERCALCAEMIA [None]
  - HYPERPARATHYROIDISM [None]
  - IRRITABILITY [None]
  - MANIA [None]
  - MEMORY IMPAIRMENT [None]
  - MOOD ALTERED [None]
  - PERSECUTORY DELUSION [None]
  - PSYCHOTIC DISORDER [None]
  - VITAMIN D DECREASED [None]
